FAERS Safety Report 12784814 (Version 2)
Quarter: 2016Q4

REPORT INFORMATION
  Report Type: Spontaneous
  Country: CH (occurrence: AU)
  Receive Date: 20160927
  Receipt Date: 20161110
  Transmission Date: 20170207
  Serious: Yes (Other)
  Sender: FDA-Public Use
  Company Number: CH-LPDUSPRD-20160828

PATIENT
  Age: 17 Year
  Sex: Female

DRUGS (1)
  1. FERINJECT [Suspect]
     Active Substance: FERRIC CARBOXYMALTOSE
     Dosage: 1 GM
     Route: 041
     Dates: start: 20150710

REACTIONS (4)
  - Rash maculo-papular [Unknown]
  - Nausea [Unknown]
  - Rash [Unknown]
  - Chest pain [Unknown]

NARRATIVE: CASE EVENT DATE: 20150710
